FAERS Safety Report 19259425 (Version 2)
Quarter: 2021Q3

REPORT INFORMATION
  Report Type: Report from Study
  Country: BE (occurrence: BE)
  Receive Date: 20210514
  Receipt Date: 20210702
  Transmission Date: 20211014
  Serious: Yes (Hospitalization, Other)
  Sender: FDA-Public Use
  Company Number: BE-EMD SERONO-9237042

PATIENT
  Age: 77 Year
  Sex: Female
  Weight: 56 kg

DRUGS (15)
  1. STEOVIT FORTE [Concomitant]
     Indication: OSTEOPOROSIS
     Dosage: 1 G/800 IU
     Route: 048
  2. SERETIDE [Concomitant]
     Active Substance: FLUTICASONE PROPIONATE\SALMETEROL XINAFOATE
     Indication: DYSPNOEA
     Dosage: 25/50 UG
     Route: 055
  3. NOBITEN                            /01339101/ [Concomitant]
     Active Substance: NEBIVOLOL
     Indication: HYPERTENSION
     Route: 048
  4. AERIUS (DESLORATADINE) [Concomitant]
     Active Substance: DESLORATADINE
     Indication: PRURITUS
     Route: 048
  5. PROLIA [Concomitant]
     Active Substance: DENOSUMAB
     Indication: OSTEOPOROSIS
     Route: 058
  6. LERCANIDIPINE [Concomitant]
     Active Substance: LERCANIDIPINE
     Indication: HYPERTENSION
     Route: 048
     Dates: start: 20210623
  7. ASAFLOW [Concomitant]
     Active Substance: ASPIRIN
     Indication: THROMBOSIS PROPHYLAXIS
     Route: 048
  8. TEPOTINIB. [Suspect]
     Active Substance: TEPOTINIB
     Indication: SMALL CELL LUNG CANCER METASTATIC
     Route: 048
     Dates: start: 20210305, end: 20210505
  9. AMLOR [Concomitant]
     Active Substance: AMLODIPINE BESYLATE
     Indication: HYPERTENSION
     Route: 048
  10. SERENASE                           /00027401/ [Concomitant]
     Active Substance: HALOPERIDOL
     Indication: INSOMNIA
     Route: 048
  11. DAFLON                             /01026201/ [Concomitant]
     Active Substance: DIOSMIN\HESPERIDIN
     Indication: LYMPHOEDEMA
     Route: 048
  12. PARACETAMOL [Concomitant]
     Active Substance: ACETAMINOPHEN
     Indication: PAIN
     Route: 048
  13. TEPOTINIB. [Suspect]
     Active Substance: TEPOTINIB
     Route: 048
     Dates: start: 20210528, end: 20210624
  14. METATOP                            /00571201/ [Concomitant]
     Indication: INSOMNIA
     Route: 048
  15. PANTOMED                           /01263204/ [Concomitant]
     Active Substance: PANTOPRAZOLE SODIUM
     Indication: PROPHYLAXIS
     Route: 048

REACTIONS (1)
  - Renal impairment [Not Recovered/Not Resolved]

NARRATIVE: CASE EVENT DATE: 20210505
